FAERS Safety Report 5728334-9 (Version None)
Quarter: 2008Q2

REPORT INFORMATION
  Report Type: 
  Country: None (occurrence: None)
  Receive Date: 20080506
  Receipt Date: 20080423
  Transmission Date: 20081010
  Serious: Yes (Other)
  Sender: FDA-Public Use
  Company Number: PHHY2008GB06771

PATIENT
  Sex: Male

DRUGS (2)
  1. VOLTAREN [Suspect]
  2. DICLOFENAC [Suspect]
     Indication: EPICONDYLITIS

REACTIONS (2)
  - DEPRESSED MOOD [None]
  - GASTRIC ULCER [None]
